FAERS Safety Report 5804021-3 (Version None)
Quarter: 2008Q3

REPORT INFORMATION
  Report Type: 
  Country: None (occurrence: None)
  Receive Date: 20080703
  Receipt Date: 20080623
  Transmission Date: 20090109
  Serious: Yes (Other)
  Sender: FDA-Public Use
  Company Number: 236003J08USA

PATIENT
  Age: 61 Year
  Sex: Male

DRUGS (3)
  1. REBIF [Suspect]
     Indication: MULTIPLE SCLEROSIS
     Dosage: 44 MCG, 3 IN 1 WEEKS, SUBCUTANEOUS
     Route: 058
     Dates: start: 20080618
  2. IBUPROFEN (ISUPROFEN) [Concomitant]
  3. SYNTHROID [Concomitant]

REACTIONS (5)
  - CEREBRAL HAEMORRHAGE [None]
  - CLAVICLE FRACTURE [None]
  - CONTUSION [None]
  - FALL [None]
  - LOSS OF CONSCIOUSNESS [None]
